FAERS Safety Report 24042381 (Version 1)
Quarter: 2024Q3

REPORT INFORMATION
  Report Type: Report from Study
  Country: US (occurrence: US)
  Receive Date: 20240702
  Receipt Date: 20240702
  Transmission Date: 20241017
  Serious: Yes (Hospitalization, Other)
  Sender: ABBVIE
  Company Number: US-ABBVIE-5822352

PATIENT
  Sex: Male

DRUGS (2)
  1. RINVOQ [Suspect]
     Active Substance: UPADACITINIB
     Indication: Product used for unknown indication
     Route: 048
     Dates: start: 202405
  2. RINVOQ [Suspect]
     Active Substance: UPADACITINIB
     Indication: Product used for unknown indication
     Dosage: THERAPY START DATE 2024
     Route: 048
     Dates: end: 20240413

REACTIONS (3)
  - Gastric haemorrhage [Recovering/Resolving]
  - Thrombosis [Recovering/Resolving]
  - Gastritis bacterial [Recovering/Resolving]

NARRATIVE: CASE EVENT DATE: 20240101
